FAERS Safety Report 8167336-2 (Version None)
Quarter: 2012Q1

REPORT INFORMATION
  Report Type: 
  Country: None (occurrence: None)
  Receive Date: 20120227
  Receipt Date: 20120221
  Transmission Date: 20120608
  Serious: Yes (Other)
  Sender: FDA-Public Use
  Company Number: CA-PFIZER INC-2012045779

PATIENT
  Sex: Male

DRUGS (1)
  1. VARENICLINE TARTRATE [Suspect]
     Dosage: UNK

REACTIONS (6)
  - SUICIDAL IDEATION [None]
  - LETHARGY [None]
  - MOOD SWINGS [None]
  - ANGER [None]
  - AMNESIA [None]
  - POST-TRAUMATIC STRESS DISORDER [None]
